FAERS Safety Report 25206552 (Version 1)
Quarter: 2025Q2

REPORT INFORMATION
  Report Type: Spontaneous
  Country: TR (occurrence: TR)
  Receive Date: 20250417
  Receipt Date: 20250417
  Transmission Date: 20250717
  Serious: Yes (Death, Life-Threatening, Hospitalization, Other)
  Sender: RANBAXY
  Company Number: TR-SUN PHARMACEUTICAL INDUSTRIES LTD-2025R1-503844

PATIENT
  Age: 10 Year
  Sex: Female

DRUGS (1)
  1. ASPIRIN [Suspect]
     Active Substance: ASPIRIN
     Indication: Capillary leak syndrome
     Route: 065

REACTIONS (5)
  - Polycythaemia [Fatal]
  - Therapy non-responder [Fatal]
  - Hypoalbuminaemia [Fatal]
  - Hypotension [Fatal]
  - Multiple organ dysfunction syndrome [Fatal]
